FAERS Safety Report 6038544-1 (Version None)
Quarter: 2009Q1

REPORT INFORMATION
  Report Type: 
  Country: None (occurrence: None)
  Receive Date: 20090115
  Receipt Date: 20080711
  Transmission Date: 20090719
  Serious: No
  Sender: FDA-Public Use
  Company Number: US-KINGPHARMUSA00001-K200800817

PATIENT
  Age: 14 Year
  Sex: Female

DRUGS (1)
  1. EPIPEN [Suspect]
     Dosage: UNK, SINGLE
     Dates: start: 20080708, end: 20080708

REACTIONS (4)
  - ACCIDENTAL EXPOSURE [None]
  - HYPOAESTHESIA [None]
  - INJECTION SITE OEDEMA [None]
  - INJECTION SITE PAIN [None]
